FAERS Safety Report 26111970 (Version 1)
Quarter: 2025Q4

REPORT INFORMATION
  Report Type: Spontaneous
  Country: US (occurrence: None)
  Receive Date: 20251201
  Receipt Date: 20251201
  Transmission Date: 20260117
  Serious: Yes (Other)
  Sender: FDA-CTU
  Company Number: None

PATIENT
  Age: 65 Year
  Sex: Male
  Weight: 79.65 kg

DRUGS (6)
  1. VTAMA [Suspect]
     Active Substance: TAPINAROF
     Indication: Rash
  2. ZYRTEC [Concomitant]
     Active Substance: CETIRIZINE HYDROCHLORIDE
  3. Vit D 3 [Concomitant]
  4. VITAMIN B-COMPLEX [Concomitant]
     Active Substance: DEXPANTHENOL\NIACINAMIDE\PYRIDOXINE HYDROCHLORIDE\RIBOFLAVIN 5^-PHOSPHATE SODIUM\THIAMINE HYDROCHLOR
  5. VITAMINS [Concomitant]
     Active Substance: VITAMINS
  6. Naproen Sodium [Concomitant]

REACTIONS (3)
  - Skin disorder [None]
  - Rash [None]
  - Inflammation [None]
